FAERS Safety Report 7794192-4 (Version None)
Quarter: 2011Q4

REPORT INFORMATION
  Report Type: 
  Country: None (occurrence: None)
  Receive Date: 20111004
  Receipt Date: 20110929
  Transmission Date: 20120403
  Serious: Yes (Death, Life-Threatening, Hospitalization, Other)
  Sender: FDA-Public Use
  Company Number: JP-BAYER-200913090BYL

PATIENT
  Age: 54 Year
  Sex: Male
  Weight: 40.5 kg

DRUGS (11)
  1. ELEMENMIC [Concomitant]
     Indication: DECREASED APPETITE
     Dosage: 2 ML (DAILY DOSE),  INTRAVENOUS
     Route: 042
     Dates: start: 20090908
  2. OXINORM [Concomitant]
     Dosage: 5 MG, QD
     Route: 048
     Dates: start: 20090918, end: 20090918
  3. FENTANYL [Concomitant]
     Dosage: SINCE BEFORE NEXAVAR ADMINISTRATION
     Route: 062
  4. LANSOPRAZOLE [Concomitant]
     Dosage: SINCE BEFORE NEXAVAR ADMINISTRATION
     Route: 048
  5. NEXAVAR [Suspect]
     Dosage: 600 MG, QD
     Route: 048
     Dates: start: 20090912, end: 20090925
  6. TPN [Concomitant]
     Indication: DECREASED APPETITE
     Dosage: 1806 ML (DAILY DOSE),  INTRAVENOUS
     Route: 042
     Dates: start: 20090908
  7. BISMUTH SUBNITRATE [Concomitant]
     Indication: DIARRHOEA
     Dosage: 2 G (DAILY DOSE), , ORAL
     Route: 048
     Dates: start: 20090829
  8. VOLTAREN [Concomitant]
     Dosage: SINCE BEFORE NEXAVAR ADMINISTRATION
     Route: 054
  9. ALBUMIN TANNATE [Concomitant]
     Indication: DIARRHOEA
     Dosage: 2.0 G (DAILY DOSE), , ORAL
     Route: 048
     Dates: start: 20090829
  10. NEXAVAR [Suspect]
     Indication: HEPATIC NEOPLASM MALIGNANT
     Dosage: 400 MG, BID
     Route: 048
     Dates: start: 20090810, end: 20090910
  11. ZOLPIDEM [Concomitant]
     Dosage: SINCE BEFORE NEXAVAR ADMINISTRATION
     Route: 048

REACTIONS (12)
  - ANAEMIA [None]
  - DIARRHOEA [None]
  - BLOOD ALKALINE PHOSPHATASE INCREASED [None]
  - CONSTIPATION [None]
  - BILIRUBIN CONJUGATED INCREASED [None]
  - METASTASES TO BONE [None]
  - PNEUMONIA BACTERIAL [None]
  - PLATELET COUNT DECREASED [None]
  - LIVER CARCINOMA RUPTURED [None]
  - DECREASED APPETITE [None]
  - HEPATIC FUNCTION ABNORMAL [None]
  - BLOOD BILIRUBIN INCREASED [None]
